FAERS Safety Report 5900047-X (Version None)
Quarter: 2008Q3

REPORT INFORMATION
  Report Type: 
  Country: None (occurrence: None)
  Receive Date: 20080925
  Receipt Date: 20080925
  Transmission Date: 20090109
  Serious: Yes (Other)
  Sender: FDA-Public Use
  Company Number: None

PATIENT
  Age: 46 Year
  Sex: Female
  Weight: 63.5036 kg

DRUGS (4)
  1. IMITREX [Suspect]
     Indication: HEADACHE
     Dosage: 1 TABLET AS NEEDED PO
     Route: 048
  2. IMITREX [Suspect]
     Indication: MIGRAINE
     Dosage: 1 TABLET AS NEEDED PO
     Route: 048
  3. IMITREX [Suspect]
     Indication: HEADACHE
     Dosage: 1 TABLET AS NEEDED PO
     Route: 048
  4. IMITREX [Suspect]
     Indication: MIGRAINE
     Dosage: 1 TABLET AS NEEDED PO
     Route: 048

REACTIONS (6)
  - HEADACHE [None]
  - MUSCLE SPASMS [None]
  - MUSCLE TIGHTNESS [None]
  - MYALGIA [None]
  - REBOUND EFFECT [None]
  - SPINAL OSTEOARTHRITIS [None]
